FAERS Safety Report 20256019 (Version 1)
Quarter: 2021Q4

REPORT INFORMATION
  Report Type: Spontaneous
  Country: US (occurrence: None)
  Receive Date: 20211229
  Receipt Date: 20211229
  Transmission Date: 20220303
  Serious: Yes (Hospitalization)
  Sender: FDA-Public Use
  Company Number: None

PATIENT
  Age: 64 Year
  Sex: Female
  Weight: 50 kg

DRUGS (1)
  1. CYTARABINE [Suspect]
     Active Substance: CYTARABINE
     Dates: end: 20211218

REACTIONS (8)
  - Chills [None]
  - Body temperature increased [None]
  - Headache [None]
  - Abdominal pain [None]
  - Constipation [None]
  - White blood cell count decreased [None]
  - Haemoglobin decreased [None]
  - Neutrophil count decreased [None]

NARRATIVE: CASE EVENT DATE: 20211226
